FAERS Safety Report 7564629-4 (Version None)
Quarter: 2011Q2

REPORT INFORMATION
  Report Type: 
  Country: None (occurrence: None)
  Receive Date: 20110622
  Receipt Date: 20100804
  Transmission Date: 20111010
  Serious: Yes (Life-Threatening, Hospitalization)
  Sender: FDA-Public Use
  Company Number: US-MYLANLABS-2010S1012824

PATIENT
  Age: 62 Year
  Sex: Male
  Weight: 71.2 kg

DRUGS (11)
  1. THORAZINE /00011901/ [Concomitant]
     Route: 048
  2. AVODART [Concomitant]
     Route: 048
  3. FERROUS SULFATE TAB [Concomitant]
     Route: 048
  4. METOPROLOL TARTRATE [Concomitant]
     Route: 048
  5. DEPAKOTE [Concomitant]
     Route: 048
  6. ASPIRIN [Concomitant]
     Route: 048
  7. MULTI-VITAMINS [Concomitant]
     Route: 048
  8. VITAMIN D [Concomitant]
     Route: 048
  9. ZYPREXA [Concomitant]
     Route: 048
  10. FLOMAX [Concomitant]
     Route: 048
  11. CLOZAPINE [Suspect]
     Route: 048
     Dates: start: 20100618, end: 20100712

REACTIONS (2)
  - AGRANULOCYTOSIS [None]
  - LEUKOPENIA [None]
